FAERS Safety Report 14763744 (Version 1)
Quarter: 2018Q2

REPORT INFORMATION
  Report Type: Spontaneous
  Country: US (occurrence: US)
  Receive Date: 20180416
  Receipt Date: 20180416
  Transmission Date: 20180711
  Serious: No
  Sender: FDA-Public Use
  Company Number: US-HORIZON-PEN-0264-2018

PATIENT
  Age: 67 Year
  Sex: Female

DRUGS (1)
  1. PENNSAID [Suspect]
     Active Substance: DICLOFENAC SODIUM
     Indication: ARTHRALGIA
     Dosage: 2 PUMPS (40MG) TO AFFECTED KNEE(S) TWICE DAILY
     Route: 061

REACTIONS (2)
  - Drug ineffective [Unknown]
  - Malaise [Unknown]
